FAERS Safety Report 11685654 (Version 3)
Quarter: 2016Q1

REPORT INFORMATION
  Report Type: Spontaneous
  Country: GB (occurrence: GB)
  Receive Date: 20151030
  Receipt Date: 20160212
  Transmission Date: 20160525
  Serious: Yes (Other)
  Sender: FDA-Public Use
  Company Number: GB-AMGEN-GBRSP2015103892

PATIENT
  Age: 67 Year
  Sex: Male

DRUGS (3)
  1. DEXAMETHASONE. [Concomitant]
     Active Substance: DEXAMETHASONE
     Dosage: UNK
  2. NEULASTA [Suspect]
     Active Substance: PEGFILGRASTIM
     Indication: PRODUCT USED FOR UNKNOWN INDICATION
     Dosage: UNK
     Route: 065
  3. DOCETAXEL. [Concomitant]
     Active Substance: DOCETAXEL
     Dosage: UNK

REACTIONS (22)
  - Joint swelling [Unknown]
  - Neuropathy peripheral [Unknown]
  - Skin atrophy [Unknown]
  - Mouth swelling [Unknown]
  - Insomnia [Unknown]
  - Alopecia [Unknown]
  - Tooth extraction [Unknown]
  - Pyrexia [Unknown]
  - Contusion [Not Recovered/Not Resolved]
  - Oral pain [Unknown]
  - Skin sensitisation [Unknown]
  - Swelling [Not Recovered/Not Resolved]
  - Diarrhoea [Unknown]
  - Fatigue [Unknown]
  - Muscular weakness [Unknown]
  - Feeling abnormal [Unknown]
  - Transfusion [Unknown]
  - Hypertension [Unknown]
  - Nausea [Recovered/Resolved]
  - Dyspnoea [Unknown]
  - Peripheral swelling [Recovering/Resolving]
  - Dysgeusia [Unknown]

NARRATIVE: CASE EVENT DATE: 201510
